FAERS Safety Report 26148636 (Version 1)
Quarter: 2025Q4

REPORT INFORMATION
  Report Type: Spontaneous
  Country: EU (occurrence: EU)
  Receive Date: 20251212
  Receipt Date: 20251212
  Transmission Date: 20260117
  Serious: Yes (Other)
  Sender: BAUSCH AND LOMB
  Company Number: EU-BAUSCH-BH-2025-021749

PATIENT
  Age: 38 Year
  Sex: Female

DRUGS (8)
  1. DIAZEPAM [Suspect]
     Active Substance: DIAZEPAM
     Indication: Depression
     Dosage: 10 MG/2 ML/P
  2. DIAZEPAM [Suspect]
     Active Substance: DIAZEPAM
     Indication: Acute psychosis
     Dosage: 30 MG/6 ML
  3. OLANZAPINE [Suspect]
     Active Substance: OLANZAPINE
     Indication: Depression
     Route: 048
  4. OLANZAPINE [Suspect]
     Active Substance: OLANZAPINE
     Indication: Acute psychosis
  5. HALOPERIDOL [Suspect]
     Active Substance: HALOPERIDOL
     Indication: Depression
     Dosage: 10 MG/2 ML/P
  6. HALOPERIDOL [Suspect]
     Active Substance: HALOPERIDOL
     Indication: Acute psychosis
     Dosage: 15 MG/3 ML
  7. SERTRALINE [Suspect]
     Active Substance: SERTRALINE HYDROCHLORIDE
     Indication: Depression
     Route: 048
  8. SERTRALINE [Suspect]
     Active Substance: SERTRALINE HYDROCHLORIDE
     Indication: Acute psychosis

REACTIONS (3)
  - Condition aggravated [Recovering/Resolving]
  - Acute psychosis [Recovering/Resolving]
  - Refusal of treatment by patient [Unknown]
